FAERS Safety Report 5289183-1 (Version None)
Quarter: 2007Q1

REPORT INFORMATION
  Report Type: 
  Country: None (occurrence: None)
  Receive Date: 20070119
  Receipt Date: 20060503
  Transmission Date: 20070707
  Serious: Yes (Other)
  Sender: FDA-Public Use
  Company Number: BDI-008213

PATIENT
  Age: 31 Year
  Sex: Female

DRUGS (1)
  1. PROHANCE [Suspect]
     Indication: NUCLEAR MAGNETIC RESONANCE IMAGING
     Dosage: IV
     Route: 036
     Dates: start: 20060502, end: 20060502

REACTIONS (5)
  - EYE SWELLING [None]
  - LIP SWELLING [None]
  - TACHYCARDIA [None]
  - THROAT TIGHTNESS [None]
  - VOMITING [None]
